FAERS Safety Report 10051486 (Version 1)
Quarter: 2014Q1

REPORT INFORMATION
  Report Type: Spontaneous
  Country: US (occurrence: None)
  Receive Date: 20140328
  Receipt Date: 20140328
  Transmission Date: 20141002
  Serious: Yes (Hospitalization)
  Sender: FDA-Public Use
  Company Number: 2013-US-001307

PATIENT
  Age: 42 Year
  Sex: Female

DRUGS (3)
  1. XYREM (SODIUM OXYBATE) ORAL SOLUTION, 500MG/ML [Suspect]
     Indication: NARCOLEPSY
     Route: 048
     Dates: start: 200504, end: 2005
  2. LIOTHYRONINE SODIUM (LIOTHYRONINE SODIUM) [Concomitant]
  3. LEVOTHYROXINE (LEVOTHYROXINE) [Concomitant]

REACTIONS (4)
  - Torticollis [None]
  - Drug intolerance [None]
  - Torticollis [None]
  - Headache [None]
